FAERS Safety Report 8314230-X (Version None)
Quarter: 2012Q2

REPORT INFORMATION
  Report Type: 
  Country: None (occurrence: None)
  Receive Date: 20120426
  Receipt Date: 20120418
  Transmission Date: 20120825
  Serious: Yes (Hospitalization)
  Sender: FDA-Public Use
  Company Number: JP-VERTEX PHARMACEUTICALS INC.-AE-2012-005827

PATIENT
  Age: 60 Year
  Sex: Female

DRUGS (3)
  1. RIBAVIRIN [Concomitant]
     Route: 048
     Dates: start: 20120316, end: 20120417
  2. PEGINTERFERON ALFA-2B [Concomitant]
     Route: 058
     Dates: start: 20120316, end: 20120417
  3. TELAVIC (TELAPREVIR) [Suspect]
     Route: 048
     Dates: start: 20120316, end: 20120417

REACTIONS (2)
  - PYELONEPHRITIS [None]
  - SEPSIS [None]
